FAERS Safety Report 5627695-9 (Version None)
Quarter: 2008Q1

REPORT INFORMATION
  Report Type: 
  Country: None (occurrence: None)
  Receive Date: 20080214
  Receipt Date: 20080214
  Transmission Date: 20080703
  Serious: Yes (Life-Threatening)
  Sender: FDA-Public Use
  Company Number: None

PATIENT
  Age: 79 Year
  Sex: Female
  Weight: 77.1115 kg

DRUGS (1)
  1. HYDROXYUREA [Suspect]
     Indication: PLATELET COUNT INCREASED
     Dosage: 2 CAPSULES DAILY PO
     Route: 048
     Dates: start: 20001221, end: 20080120

REACTIONS (4)
  - DRUG EFFECT DECREASED [None]
  - PAIN IN EXTREMITY [None]
  - POISONING [None]
  - SKIN ULCER [None]
